FAERS Safety Report 14758937 (Version 1)
Quarter: 2018Q2

REPORT INFORMATION
  Report Type: Report from Study
  Country: CH (occurrence: CH)
  Receive Date: 20180413
  Receipt Date: 20180413
  Transmission Date: 20180711
  Serious: Yes (Hospitalization, Other)
  Sender: FDA-Public Use
  Company Number: PHHY2018CH056945

PATIENT
  Sex: Female
  Weight: 76.4 kg

DRUGS (7)
  1. OVESTIN [Concomitant]
     Active Substance: ESTRIOL
     Indication: BLADDER DISORDER
     Dosage: QD
     Route: 065
     Dates: start: 20170101
  2. XARELTO [Concomitant]
     Active Substance: RIVAROXABAN
     Indication: PRODUCT USED FOR UNKNOWN INDICATION
     Dosage: 20 MG, QD
     Route: 065
     Dates: start: 20140101
  3. METO ZEROK [Suspect]
     Active Substance: METOPROLOL SUCCINATE
     Indication: HYPERTENSION
     Dosage: 50 MG, QD
     Route: 048
     Dates: start: 20140101
  4. BALDRIAN-DISPERT [Concomitant]
     Active Substance: HERBALS
     Indication: SLEEP DISORDER
     Dosage: UNK
     Route: 065
  5. IMOVANE [Concomitant]
     Active Substance: ZOPICLONE
     Indication: SLEEP DISORDER
     Dosage: QD
     Route: 048
  6. EXFORGE HCT [Concomitant]
     Active Substance: AMLODIPINE BESYLATE\HYDROCHLOROTHIAZIDE\VALSARTAN
     Indication: BLOOD PRESSURE ABNORMAL
     Dosage: 10 MG, QD (10/160/12.5, NOVARTIS)
     Route: 048
     Dates: start: 20140101
  7. METO ZEROK [Suspect]
     Active Substance: METOPROLOL SUCCINATE
     Indication: BLOOD PRESSURE MEASUREMENT
     Dosage: 100 MG, QD
     Route: 048
     Dates: start: 20140101

REACTIONS (9)
  - Skin cancer [Unknown]
  - Pulmonary oedema [Recovered/Resolved]
  - Asthenia [Recovered/Resolved]
  - Dyspnoea exertional [Unknown]
  - Cardiac failure chronic [Unknown]
  - Dyspnoea [Unknown]
  - Skin abrasion [Recovered/Resolved]
  - Insomnia [Not Recovered/Not Resolved]
  - Fatigue [Recovered/Resolved]

NARRATIVE: CASE EVENT DATE: 2014
